FAERS Safety Report 20695121 (Version 1)
Quarter: 2022Q2

REPORT INFORMATION
  Report Type: Spontaneous
  Country: US (occurrence: None)
  Receive Date: 20220408
  Receipt Date: 20220408
  Transmission Date: 20220720
  Serious: Yes (Death)
  Sender: FDA-Public Use
  Company Number: None

PATIENT
  Age: 85 Year
  Sex: Male

DRUGS (22)
  1. PRALUENT [Suspect]
     Active Substance: ALIROCUMAB
     Indication: Hyperlipidaemia
     Dosage: FREQUENCY : EVERY OTHER WEEK;?
     Route: 058
     Dates: start: 20200731, end: 20220310
  2. AMLODIPINE [Concomitant]
     Active Substance: AMLODIPINE BESYLATE
  3. ProAir HFA Oral Inahler [Concomitant]
  4. Azelastine 0.15% Nasal Spray [Concomitant]
  5. Breo Ellipta 100-25mg Inhaler [Concomitant]
  6. Flonase 50mcg Nasal Spray [Concomitant]
  7. Lumigan 0.01% Opthalmic Solution [Concomitant]
  8. LYRICA [Concomitant]
     Active Substance: PREGABALIN
  9. OMEPRAZOLE [Concomitant]
     Active Substance: OMEPRAZOLE
  10. SINGULAIR [Concomitant]
     Active Substance: MONTELUKAST SODIUM
  11. FERROUS SULFATE [Concomitant]
     Active Substance: FERROUS SULFATE
  12. FINASTERIDE [Concomitant]
     Active Substance: FINASTERIDE
  13. Magnesium 250mg [Concomitant]
  14. Rapaflo 4mg [Concomitant]
  15. ASPIRIN [Concomitant]
     Active Substance: ASPIRIN
  16. Aggrenox 25mg/200mg [Concomitant]
  17. BUSPIRONE [Concomitant]
     Active Substance: BUSPIRONE HYDROCHLORIDE
  18. JANUVIA [Concomitant]
     Active Substance: SITAGLIPTIN PHOSPHATE
  19. LORATADINE [Concomitant]
     Active Substance: LORATADINE
  20. Metoprolol Er Succinate 25mg [Concomitant]
  21. MIRTAZAPINE [Concomitant]
     Active Substance: MIRTAZAPINE
  22. SIMVASTATIN [Concomitant]
     Active Substance: SIMVASTATIN

REACTIONS (1)
  - Death [None]

NARRATIVE: CASE EVENT DATE: 20220408
